FAERS Safety Report 12286276 (Version 2)
Quarter: 2018Q1

REPORT INFORMATION
  Report Type: Spontaneous
  Country: US (occurrence: US)
  Receive Date: 20160420
  Receipt Date: 20180308
  Transmission Date: 20180508
  Serious: No
  Sender: FDA-Public Use
  Company Number: US-PFIZER INC-2016180663

PATIENT
  Age: 63 Year
  Sex: Female
  Weight: 91 kg

DRUGS (21)
  1. ALLOPURINOL. [Concomitant]
     Active Substance: ALLOPURINOL
     Dosage: 100 MG, UNK
     Dates: start: 20150920
  2. FUROSEMIDE. [Concomitant]
     Active Substance: FUROSEMIDE
     Dosage: UNK
  3. METOPROLOL TARTRATE. [Concomitant]
     Active Substance: METOPROLOL TARTRATE
     Dosage: 25 MG, UNK
     Dates: start: 20160811
  4. AMLODIPINE [Concomitant]
     Active Substance: AMLODIPINE BESYLATE
     Dosage: UNK
  5. COLCHICINE. [Concomitant]
     Active Substance: COLCHICINE
     Dosage: 0.6 MG, UNK
     Dates: start: 20150920
  6. HALOBETASOL PROPIONATE. [Concomitant]
     Active Substance: HALOBETASOL PROPIONATE
     Dosage: UNK (FOR 15 DAYS)
     Dates: start: 20160811
  7. INDOMETHACIN /00003801/ [Concomitant]
     Active Substance: INDOMETHACIN
     Dosage: 50 MG, UNK (FOR 10 DAYS)
     Dates: start: 20160811
  8. FENOFIBRATE. [Concomitant]
     Active Substance: FENOFIBRATE
     Dosage: 200 MG, UNK
     Dates: start: 20151118
  9. BACLOFEN. [Concomitant]
     Active Substance: BACLOFEN
     Dosage: UNK
  10. LEVOTHYROXINE. [Concomitant]
     Active Substance: LEVOTHYROXINE
     Dosage: 112 UG, UNK (FOR 30 DAYS)
     Dates: start: 20160302
  11. NITROFURANTOIN MONOHYDRATE MACROCRYSTALS [Concomitant]
     Active Substance: NITROFURANTOIN\NITROFURANTOIN MONOHYDRATE
     Dosage: 100 MG, UNK
     Dates: start: 20150723
  12. FLUTICASONE. [Concomitant]
     Active Substance: FLUTICASONE
     Dosage: UNK (FOR 15 DAYS)
     Dates: start: 20160811
  13. ALLOPURINOL. [Concomitant]
     Active Substance: ALLOPURINOL
     Dosage: 100 MG, UNK
     Dates: start: 20160811
  14. GABAPENTIN. [Concomitant]
     Active Substance: GABAPENTIN
     Dosage: 100 MG, UNK
     Dates: start: 20141020
  15. LEVOTHYROXINE. [Concomitant]
     Active Substance: LEVOTHYROXINE
     Dosage: 112 UG, UNK
     Dates: start: 20151115
  16. LISINOPRIL. [Concomitant]
     Active Substance: LISINOPRIL
     Dosage: 5 MG, UNK (FOR 30 DAYS)
     Dates: start: 20160811
  17. NORCO [Suspect]
     Active Substance: ACETAMINOPHEN\HYDROCODONE BITARTRATE
     Indication: PAIN
     Dosage: HYDROCODONE BITARTRATE 5 MG, 325 MG PARACETAMOL, AS NEEDED
     Route: 048
     Dates: start: 20151210, end: 20160108
  18. HYDROCODONE [Concomitant]
     Active Substance: HYDROCODONE
     Dosage: UNK
  19. LEVOTHYROXINE. [Concomitant]
     Active Substance: LEVOTHYROXINE
     Dosage: 112 UG, UNK (FOR 30 DAYS)
     Dates: start: 20160811
  20. LYRICA [Suspect]
     Active Substance: PREGABALIN
     Indication: PAIN
     Dosage: 75 MG, 2X/DAY
     Route: 048
     Dates: start: 20151210
  21. ULORIC [Concomitant]
     Active Substance: FEBUXOSTAT
     Dosage: 40 MG, UNK
     Dates: start: 20150609

REACTIONS (5)
  - Back pain [Unknown]
  - Pain [Unknown]
  - Musculoskeletal discomfort [Unknown]
  - Mononeuropathy [Unknown]
  - Analgesic intervention supportive therapy [Unknown]

NARRATIVE: CASE EVENT DATE: 20151210
